FAERS Safety Report 9189627 (Version 2)
Quarter: 2013Q4

REPORT INFORMATION
  Report Type: Spontaneous
  Country: GR (occurrence: GR)
  Receive Date: 20130326
  Receipt Date: 20131111
  Transmission Date: 20140711
  Serious: Yes (Hospitalization)
  Sender: FDA-Public Use
  Company Number: GR-JNJFOC-20130312764

PATIENT
  Age: 70 Year
  Sex: Male

DRUGS (2)
  1. REMICADE [Suspect]
     Indication: COLITIS ULCERATIVE
     Dosage: START DATE: 3 TO 4 YEARS PRIOR TO THE DATE OF REPORT
     Route: 042
  2. REMICADE [Suspect]
     Indication: COLITIS ULCERATIVE
     Dosage: RESTARTED 1.5 YEARS PRIOR TO DATE OF REPORT
     Route: 042

REACTIONS (1)
  - Pancreatitis [Recovered/Resolved]
